FAERS Safety Report 24104911 (Version 1)
Quarter: 2024Q3

REPORT INFORMATION
  Report Type: Spontaneous
  Country: US (occurrence: US)
  Receive Date: 20240717
  Receipt Date: 20240717
  Transmission Date: 20241016
  Serious: Yes (Other)
  Sender: VERO BIOTECH
  Company Number: US-VEROBIOTECH-2024USVEROSPO00144

PATIENT
  Age: 40 Year
  Sex: Female

DRUGS (1)
  1. GENOSYL [Suspect]
     Active Substance: NITRIC OXIDE
     Indication: Product used for unknown indication
     Dosage: 5 PPM

REACTIONS (2)
  - Oxygen saturation decreased [Unknown]
  - Underdose [Unknown]
